FAERS Safety Report 8676251 (Version 3)
Quarter: 2012Q4

REPORT INFORMATION
  Report Type: 
  Country: US (occurrence: US)
  Receive Date: 20120720
  Receipt Date: 20121005
  Transmission Date: 20130627
  Serious: No
  Sender: FDA-Public Use
  Company Number: US-ASTRAZENECA-2012SE47288

PATIENT
  Age: 64 Year
  Sex: Female

DRUGS (4)
  1. NEXIUM [Suspect]
     Route: 048
  2. OMEPRAZOLE [Suspect]
     Route: 048
  3. ALTERNATIVE MEDICATION [Suspect]
     Route: 065
  4. ANTIBIOTICS [Concomitant]

REACTIONS (4)
  - Drug therapy changed [Unknown]
  - Allergic oedema [Unknown]
  - Upper respiratory tract infection [Unknown]
  - Drug ineffective [Unknown]
